FAERS Safety Report 10978278 (Version 3)
Quarter: 2015Q2

REPORT INFORMATION
  Report Type: Spontaneous
  Country: US (occurrence: US)
  Receive Date: 20150402
  Receipt Date: 20150409
  Transmission Date: 20150821
  Serious: Yes (Other)
  Sender: FDA-Public Use
  Company Number: US-RB-075073-15

PATIENT
  Age: 21 Year
  Sex: Male

DRUGS (2)
  1. MUCINEX DM MAXIMUM STRENGTH [Suspect]
     Active Substance: DEXTROMETHORPHAN HYDROBROMIDE\GUAIFENESIN
     Route: 065
     Dates: start: 20130321
  2. MUCINEX DM MAXIMUM STRENGTH [Suspect]
     Active Substance: DEXTROMETHORPHAN HYDROBROMIDE\GUAIFENESIN
     Indication: DRUG ABUSE
     Route: 065
     Dates: start: 20150327

REACTIONS (7)
  - Drug abuse [Not Recovered/Not Resolved]
  - Aggression [Unknown]
  - Enuresis [Not Recovered/Not Resolved]
  - Intentional overdose [Not Recovered/Not Resolved]
  - Amnesia [Not Recovered/Not Resolved]
  - Impulse-control disorder [Not Recovered/Not Resolved]
  - Incorrect drug administration duration [Not Recovered/Not Resolved]

NARRATIVE: CASE EVENT DATE: 20130321
